FAERS Safety Report 18639509 (Version 1)
Quarter: 2020Q4

REPORT INFORMATION
  Report Type: Spontaneous
  Country: US (occurrence: US)
  Receive Date: 20201219
  Receipt Date: 20201219
  Transmission Date: 20210114
  Serious: Yes (Other)
  Sender: FDA-Public Use
  Company Number: US-PACIRA-202000543

PATIENT

DRUGS (7)
  1. NORMAL SALINE [Concomitant]
     Active Substance: SODIUM CHLORIDE
     Indication: PROCEDURAL PAIN
     Dosage: 40 ML COMBINED WITH 20 ML OF EXPAREL AND 60 ML BUPIVACAINE HCL 0.25%
  2. OXYCODONE [Concomitant]
     Active Substance: OXYCODONE
     Indication: PAIN MANAGEMENT
     Dosage: NOT PROVIDED
     Route: 048
  3. DILAUDID [Concomitant]
     Active Substance: HYDROMORPHONE HYDROCHLORIDE
     Indication: PAIN MANAGEMENT
     Dosage: IN 100 ML OF NORMAL SALINE, 0.2 MG AT INTERVAL OF 6 MINUTES
     Route: 040
  4. ACETAMINOPHEN. [Concomitant]
     Active Substance: ACETAMINOPHEN
     Indication: PAIN MANAGEMENT
     Dosage: NOT PROVIDED
     Route: 065
  5. GABAPENTIN. [Concomitant]
     Active Substance: GABAPENTIN
     Indication: PAIN MANAGEMENT
     Dosage: NOT PROVIDED
     Route: 065
  6. EXPAREL [Suspect]
     Active Substance: BUPIVACAINE
     Indication: POSTOPERATIVE ANALGESIA
     Dosage: 20 ML COMBINED WITH 60 ML BUPIVACAINE HCL 0.25% AND 40 ML NORMAL SALINE
     Route: 065
  7. BUPIVACAINE HYDROCHLORIDE. [Suspect]
     Active Substance: BUPIVACAINE HYDROCHLORIDE
     Indication: PROCEDURAL PAIN
     Dosage: 60 ML COMBINED WITH 20 ML OF EXPAREL AND 40 ML NORMAL SALINE
     Route: 065

REACTIONS (6)
  - Postoperative wound infection [Unknown]
  - Intestinal perforation [Unknown]
  - Pulmonary embolism [Unknown]
  - Seroma [Unknown]
  - Pneumonia [Unknown]
  - Ileus [Unknown]
